FAERS Safety Report 7801649-6 (Version None)
Quarter: 2011Q4

REPORT INFORMATION
  Report Type: 
  Country: None (occurrence: None)
  Receive Date: 20111007
  Receipt Date: 20110929
  Transmission Date: 20120403
  Serious: Yes (Other)
  Sender: FDA-Public Use
  Company Number: US-ASTELLAS-2011US006361

PATIENT
  Sex: Male
  Weight: 76 kg

DRUGS (2)
  1. PROGRAF [Suspect]
     Indication: RENAL TRANSPLANT
     Dosage: 1 MG, BID
     Route: 048
  2. PROGRAF [Suspect]
     Indication: PANCREAS TRANSPLANT

REACTIONS (5)
  - HERNIA [None]
  - SMALL INTESTINAL OBSTRUCTION [None]
  - PARAPLEGIA [None]
  - OFF LABEL USE [None]
  - DECUBITUS ULCER [None]
